FAERS Safety Report 7739900-3 (Version None)
Quarter: 2011Q3

REPORT INFORMATION
  Report Type: 
  Country: None (occurrence: None)
  Receive Date: 20110909
  Receipt Date: 20110905
  Transmission Date: 20111222
  Serious: Yes (Death, Other)
  Sender: FDA-Public Use
  Company Number: PHHY2011IT79389

PATIENT
  Age: 29 Year
  Sex: Male

DRUGS (2)
  1. CYCLOSPORINE [Suspect]
     Indication: LUNG TRANSPLANT
     Dosage: 350 MG, DAILY
  2. STEROIDS [Concomitant]
     Dosage: 5 MG , DAILY

REACTIONS (4)
  - EPSTEIN-BARR VIRUS ASSOCIATED LYMPHOPROLIFERATIVE DISORDER [None]
  - OBLITERATIVE BRONCHIOLITIS [None]
  - HODGKIN'S DISEASE [None]
  - EPSTEIN-BARR VIRAEMIA [None]
